FAERS Safety Report 8251750-0 (Version None)
Quarter: 2012Q2

REPORT INFORMATION
  Report Type: 
  Country: None (occurrence: None)
  Receive Date: 20120402
  Receipt Date: 20120320
  Transmission Date: 20120825
  Serious: Yes (Death)
  Sender: FDA-Public Use
  Company Number: US-MYLANLABS-2009S1019149

PATIENT
  Age: 24 Year
  Sex: Male
  Weight: 49.9 kg

DRUGS (6)
  1. VICODIN [Concomitant]
     Dosage: Q4-6H
  2. ASPIRIN [Concomitant]
  3. FENTANYL-100 [Suspect]
     Indication: PAIN
     Route: 062
     Dates: start: 20071029, end: 20071030
  4. FOLIC ACID [Concomitant]
  5. ALBUTEROL [Concomitant]
  6. HYDROXYUREA [Concomitant]

REACTIONS (1)
  - TOXICITY TO VARIOUS AGENTS [None]
